FAERS Safety Report 19057358 (Version 7)
Quarter: 2023Q2

REPORT INFORMATION
  Report Type: Spontaneous
  Country: IN (occurrence: IN)
  Receive Date: 20210325
  Receipt Date: 20230622
  Transmission Date: 20230721
  Serious: Yes (Other)
  Sender: FDA-Public Use
  Company Number: IN-PFIZER INC-2021304675

PATIENT
  Age: 59 Year
  Sex: Female

DRUGS (3)
  1. LORLATINIB [Suspect]
     Active Substance: LORLATINIB
     Indication: Non-small cell lung cancer
     Dosage: 100 MG, 1X/DAY
     Route: 048
     Dates: start: 20200903
  2. LORLATINIB [Suspect]
     Active Substance: LORLATINIB
     Indication: Small cell carcinoma
     Dosage: 100 MG, 1X/DAY
     Route: 048
     Dates: start: 20210316
  3. NIFTRAN [Concomitant]
     Dosage: 100 MG, 1X/DAY

REACTIONS (13)
  - Deep vein thrombosis [Recovered/Resolved]
  - Hip arthroplasty [Unknown]
  - Somnolence [Unknown]
  - Oedema peripheral [Unknown]
  - White blood cells urine positive [Unknown]
  - Hiccups [Unknown]
  - Polyuria [Unknown]
  - Pain [Unknown]
  - Amnesia [Unknown]
  - Memory impairment [Unknown]
  - Mood swings [Unknown]
  - Constipation [Unknown]
  - Blood pressure increased [Unknown]

NARRATIVE: CASE EVENT DATE: 20210101
